FAERS Safety Report 5421030-7 (Version None)
Quarter: 2007Q3

REPORT INFORMATION
  Report Type: 
  Country: None (occurrence: None)
  Receive Date: 20070821
  Receipt Date: 20070814
  Transmission Date: 20080115
  Serious: Yes (Life-Threatening, Hospitalization, Disabling, Other)
  Sender: FDA-Public Use
  Company Number: A0661025A

PATIENT
  Age: 51 Year
  Sex: Male

DRUGS (3)
  1. MALARONE [Suspect]
     Route: 048
     Dates: end: 20070613
  2. GLIPIZIDE [Concomitant]
  3. LISINOPRIL [Concomitant]

REACTIONS (15)
  - ABDOMINAL PAIN [None]
  - ASCITES [None]
  - BLOOD AMYLASE INCREASED [None]
  - BLOOD CALCIUM DECREASED [None]
  - BLOOD PRESSURE INCREASED [None]
  - DYSPNOEA [None]
  - GASTROINTESTINAL DISORDER [None]
  - LIPASE INCREASED [None]
  - NAUSEA [None]
  - PANCREATIC NECROSIS [None]
  - PANCREATITIS [None]
  - PYREXIA [None]
  - RESPIRATORY DEPRESSION [None]
  - RETROPERITONEAL EFFUSION [None]
  - VOMITING [None]
